FAERS Safety Report 12550045 (Version 1)
Quarter: 2016Q3

REPORT INFORMATION
  Report Type: Report from Study
  Country: ES (occurrence: ES)
  Receive Date: 20160712
  Receipt Date: 20160712
  Transmission Date: 20161109
  Serious: Yes (Life-Threatening, Hospitalization, Other)
  Sender: FDA-Public Use
  Company Number: ES-GLAXOSMITHKLINE-ES2016097099

PATIENT
  Age: 23 Year
  Sex: Female

DRUGS (6)
  1. ABILIFY [Concomitant]
     Active Substance: ARIPIPRAZOLE
     Indication: SCHIZOPHRENIA
     Dosage: 400 MG, UNK, 1 INY
     Route: 030
  2. LEPONEX [Concomitant]
     Active Substance: CLOZAPINE
     Indication: SCHIZOPHRENIA
     Dosage: 300 MG, TID,1/2-1/2-2
     Route: 048
     Dates: start: 201309, end: 20150314
  3. LEPONEX [Interacting]
     Active Substance: CLOZAPINE
     Indication: SUICIDE ATTEMPT
     Dosage: 4 G, QD,40 CPS
     Route: 048
     Dates: start: 20150314, end: 20150314
  4. ARIPIPRAZOLE. [Concomitant]
     Active Substance: ARIPIPRAZOLE
     Indication: SCHIZOPHRENIA
     Dosage: 10 MG, QD, 1-0-0
     Route: 048
     Dates: start: 201309, end: 20150314
  5. BUPROPION HYDROCHLORIDE. [Suspect]
     Active Substance: BUPROPION HYDROCHLORIDE
     Indication: SUICIDE ATTEMPT
     Dosage: 45 G, QD, 30 CPS
     Route: 048
     Dates: start: 20150314, end: 20150314
  6. ELONTRIL [Concomitant]
     Active Substance: BUPROPION HYDROCHLORIDE
     Indication: SCHIZOPHRENIA
     Dosage: 150 MG, QD, 1-0-0
     Route: 048
     Dates: start: 201309, end: 20150314

REACTIONS (3)
  - Coma [Recovered/Resolved]
  - Seizure [Recovered/Resolved]
  - Rhabdomyolysis [Recovered/Resolved]

NARRATIVE: CASE EVENT DATE: 20150314
